FAERS Safety Report 4813888-7 (Version None)
Quarter: 2005Q4

REPORT INFORMATION
  Report Type: 
  Country: None (occurrence: None)
  Receive Date: 20051028
  Receipt Date: 20050401
  Transmission Date: 20060501
  Serious: No
  Sender: FDA-Public Use
  Company Number: US-GLAXOSMITHKLINE-A0552338A

PATIENT
  Age: 74 Year
  Sex: Male

DRUGS (10)
  1. ADVAIR DISKUS 100/50 [Suspect]
     Indication: DRUG USE FOR UNKNOWN INDICATION
     Dosage: 1PUFF TWICE PER DAY
     Route: 055
     Dates: start: 20030101
  2. PREVACID [Concomitant]
  3. ATROVENT [Concomitant]
  4. TRAZODONE HCL [Concomitant]
  5. BUSPAR [Concomitant]
  6. NEURONTIN [Concomitant]
  7. NAMENDA [Concomitant]
  8. REMINYL [Concomitant]
  9. HUMIBID LA [Concomitant]
  10. RANITIDINE [Concomitant]

REACTIONS (2)
  - OVERDOSE [None]
  - PHARMACEUTICAL PRODUCT COMPLAINT [None]
